FAERS Safety Report 7201523-2 (Version None)
Quarter: 2010Q4

REPORT INFORMATION
  Report Type: 
  Country: None (occurrence: None)
  Receive Date: 20101215
  Receipt Date: 20101203
  Transmission Date: 20110411
  Serious: Yes (Other)
  Sender: FDA-Public Use
  Company Number: WAES 1012USA01068

PATIENT
  Age: 49 Year
  Sex: Female
  Weight: 68.0396 kg

DRUGS (6)
  1. CAP VORINOSTAT UNK [Suspect]
     Indication: BREAST CANCER
     Dosage: 300 MG/DAILY/PO
     Route: 048
     Dates: end: 20101121
  2. IXABEPILONE UNK [Suspect]
     Indication: BREAST CANCER
     Dosage: 20 MG/M[2]/DAILY/IV
     Route: 042
     Dates: end: 20101123
  3. AMBIEN [Concomitant]
  4. ATIVAN [Concomitant]
  5. LEXAPRO [Concomitant]
  6. METHADONE HYDROCHLORIDE [Concomitant]

REACTIONS (9)
  - ABDOMINAL PAIN UPPER [None]
  - CHILLS [None]
  - CONSTIPATION [None]
  - DIZZINESS [None]
  - HAEMATOCRIT DECREASED [None]
  - HAEMOGLOBIN DECREASED [None]
  - HYPERPHAGIA [None]
  - NEUTROPHIL COUNT DECREASED [None]
  - SENSATION OF FOREIGN BODY [None]
